FAERS Safety Report 6626679-1 (Version None)
Quarter: 2010Q1

REPORT INFORMATION
  Report Type: 
  Country: None (occurrence: None)
  Receive Date: 20100308
  Receipt Date: 20100224
  Transmission Date: 20100710
  Serious: Yes (Hospitalization)
  Sender: FDA-Public Use
  Company Number: 2010JP001127

PATIENT
  Age: 72 Year
  Sex: Male

DRUGS (3)
  1. VESICARE [Suspect]
     Indication: HYPERTONIC BLADDER
     Dosage: 2.5MG, /D, ORAL
     Route: 048
     Dates: start: 20090801
  2. HARNAL (TAMSULOSIN) ORODISPERSIBLE CR TABLET [Suspect]
     Indication: BENIGN PROSTATIC HYPERPLASIA
     Dosage: 0.2 MG, /D, ORAL
     Route: 048
  3. EVIPROSTAT (CHIMAPHILA UMBELLATA, EQUISETUM ARVENSE, MANGANESE CHLORID [Concomitant]

REACTIONS (1)
  - INTESTINAL OBSTRUCTION [None]
